FAERS Safety Report 4643542-6 (Version None)
Quarter: 2005Q2

REPORT INFORMATION
  Report Type: 
  Country: None (occurrence: None)
  Receive Date: 20050425
  Receipt Date: 20050413
  Transmission Date: 20051028
  Serious: Yes (Other)
  Sender: FDA-Public Use
  Company Number: US-JNJFOC-20050305935

PATIENT
  Sex: Female
  Weight: 94.12 kg

DRUGS (8)
  1. REMICADE [Suspect]
     Route: 042
  2. REMICADE [Suspect]
     Route: 042
  3. CELEBREX [Concomitant]
  4. METHOTREXATE [Concomitant]
  5. MEDROL [Concomitant]
  6. ARAVA [Concomitant]
  7. SOLU-CORTEF [Concomitant]
     Indication: PREMEDICATION
     Route: 042
  8. BENADRYL [Concomitant]
     Indication: PREMEDICATION
     Route: 042

REACTIONS (9)
  - ARTHRALGIA [None]
  - DYSPNOEA [None]
  - FLUSHING [None]
  - INFUSION RELATED REACTION [None]
  - JOINT STIFFNESS [None]
  - MUSCLE SPASMS [None]
  - PRURITUS [None]
  - RHEUMATOID ARTHRITIS [None]
  - TRISMUS [None]
